FAERS Safety Report 5794616-8 (Version None)
Quarter: 2008Q2

REPORT INFORMATION
  Report Type: 
  Country: None (occurrence: None)
  Receive Date: 20080625
  Receipt Date: 20080619
  Transmission Date: 20081010
  Serious: Yes (Hospitalization, Other)
  Sender: FDA-Public Use
  Company Number: 2008SP011877

PATIENT
  Age: 61 Year
  Sex: Male
  Weight: 64 kg

DRUGS (7)
  1. PEG-INTRON [Suspect]
     Indication: HEPATITIS C
     Dosage: 100 MCG; QW; SC, 80 MCG; QW; SC, 60 MCG; QW; SC, 50 MCG; QW; SC
     Route: 058
     Dates: start: 20070904, end: 20070904
  2. PEG-INTRON [Suspect]
     Indication: HEPATITIS C
     Dosage: 100 MCG; QW; SC, 80 MCG; QW; SC, 60 MCG; QW; SC, 50 MCG; QW; SC
     Route: 058
     Dates: start: 20070911, end: 20071002
  3. PEG-INTRON [Suspect]
     Indication: HEPATITIS C
     Dosage: 100 MCG; QW; SC, 80 MCG; QW; SC, 60 MCG; QW; SC, 50 MCG; QW; SC
     Route: 058
     Dates: start: 20071009, end: 20071023
  4. PEG-INTRON [Suspect]
     Indication: HEPATITIS C
     Dosage: 100 MCG; QW; SC, 80 MCG; QW; SC, 60 MCG; QW; SC, 50 MCG; QW; SC
     Route: 058
     Dates: start: 20071030, end: 20080527
  5. REBETOL [Suspect]
     Indication: HEPATITIS C
     Dosage: 800 MG; QD; PO, 600 MG; QD; PO, 400 MG; QD; PO
     Route: 048
     Dates: start: 20070904, end: 20070917
  6. REBETOL [Suspect]
     Indication: HEPATITIS C
     Dosage: 800 MG; QD; PO, 600 MG; QD; PO, 400 MG; QD; PO
     Route: 048
     Dates: start: 20070918, end: 20071015
  7. REBETOL [Suspect]
     Indication: HEPATITIS C
     Dosage: 800 MG; QD; PO, 600 MG; QD; PO, 400 MG; QD; PO
     Route: 048
     Dates: start: 20071016, end: 20080527

REACTIONS (2)
  - BLOOD PRESSURE SYSTOLIC INCREASED [None]
  - THALAMUS HAEMORRHAGE [None]
